FAERS Safety Report 5064725-X (Version None)
Quarter: 2006Q3

REPORT INFORMATION
  Report Type: 
  Country: None (occurrence: None)
  Receive Date: 20060728
  Receipt Date: 20041202
  Transmission Date: 20061208
  Serious: Yes (Hospitalization)
  Sender: FDA-Public Use
  Company Number: 2004AP06103

PATIENT
  Age: 24188 Day
  Sex: Female

DRUGS (9)
  1. NOLVADEX [Suspect]
     Indication: BREAST CANCER
     Route: 048
     Dates: start: 19980729, end: 20030805
  2. CELEBREX [Concomitant]
     Indication: OSTEOARTHRITIS
     Route: 048
     Dates: start: 20000701, end: 20040401
  3. AMPRACE [Concomitant]
     Indication: HYPERTENSION
     Route: 048
     Dates: start: 19990201, end: 20040401
  4. ISOPTIN [Concomitant]
     Indication: HYPERTENSION
     Route: 048
     Dates: start: 19990104
  5. AMIZIDE [Concomitant]
     Indication: DIURETIC THERAPY
     Route: 048
     Dates: start: 20010301, end: 20040401
  6. SLOW-K [Concomitant]
     Indication: HYPOKALAEMIA
     Route: 048
     Dates: start: 20031201
  7. LASIX [Concomitant]
     Indication: DIURETIC THERAPY
     Route: 048
     Dates: start: 20031201
  8. MELOXICAM [Concomitant]
     Indication: OSTEOARTHRITIS
     Route: 048
     Dates: start: 20040101
  9. CALTRATE [Concomitant]
     Indication: OSTEOARTHRITIS
     Route: 048
     Dates: start: 20040101

REACTIONS (1)
  - ARTHRITIS [None]
